FAERS Safety Report 17269291 (Version 1)
Quarter: 2020Q1

REPORT INFORMATION
  Report Type: Spontaneous
  Country: US (occurrence: US)
  Receive Date: 20191223
  Receipt Date: 20191223
  Transmission Date: 20200409
  Serious: Yes (Hospitalization)
  Sender: FDA-Public Use
  Company Number: None

PATIENT
  Age: 89 Year
  Sex: Male

DRUGS (2)
  1. WARFARIN (WARFARIN NA (EXELAN) 2MG TAB [Suspect]
     Active Substance: WARFARIN
     Indication: ATRIAL FIBRILLATION
     Dates: start: 20090227
  2. WARFARIN (WARFARIN NA (EXELAN) 2MG TAB [Suspect]
     Active Substance: WARFARIN
     Indication: PULMONARY EMBOLISM
     Dates: start: 20090227

REACTIONS (1)
  - Haematuria [None]

NARRATIVE: CASE EVENT DATE: 20191215
